FAERS Safety Report 6535045-9 (Version None)
Quarter: 2010Q1

REPORT INFORMATION
  Report Type: 
  Country: None (occurrence: None)
  Receive Date: 20100111
  Receipt Date: 20100111
  Transmission Date: 20100710
  Serious: Yes (Other)
  Sender: FDA-Public Use
  Company Number: None

PATIENT
  Age: 30 Year
  Sex: Female
  Weight: 60 kg

DRUGS (1)
  1. DONEPEZIL [Suspect]
     Indication: MEMORY IMPAIRMENT
     Dosage: 15 MGS ONCE A DAY
     Dates: start: 20091125, end: 20100102

REACTIONS (2)
  - DISTURBANCE IN ATTENTION [None]
  - MEMORY IMPAIRMENT [None]
